FAERS Safety Report 4705478-1 (Version None)
Quarter: 2005Q3

REPORT INFORMATION
  Report Type: 
  Country: None (occurrence: None)
  Receive Date: 20050701
  Receipt Date: 20050620
  Transmission Date: 20060218
  Serious: Yes (Death, Hospitalization)
  Sender: FDA-Public Use
  Company Number: PHBS2005TW08909

PATIENT
  Age: 95 Year
  Sex: Male

DRUGS (1)
  1. TEGRETOL [Suspect]
     Indication: NEURALGIA
     Route: 065

REACTIONS (4)
  - DEATH [None]
  - RHINORRHOEA [None]
  - SKIN ULCER [None]
  - STEVENS-JOHNSON SYNDROME [None]
